FAERS Safety Report 8534513 (Version 2)
Quarter: 2012Q4

REPORT INFORMATION
  Report Type: 
  Country: US (occurrence: US)
  Receive Date: 20120427
  Receipt Date: 20120908
  Transmission Date: 20130627
  Serious: Yes (Hospitalization, Other)
  Sender: FDA-Public Use
  Company Number: US-ABBOTT-12P-163-0927579-00

PATIENT
  Sex: Male
  Weight: 86.26 kg

DRUGS (9)
  1. HUMIRA 40 MG/ 0.8 ML PRE-FILLED SYRINGE [Suspect]
     Indication: PSORIASIS
     Dates: start: 20081110, end: 20120101
  2. BABY ASPIRIN [Concomitant]
  3. DICLOFENAC [Concomitant]
  4. FOLIC ACID [Concomitant]
  5. METOPROLOL [Concomitant]
  6. SIMVASTATIN [Concomitant]
  7. AMLODIPINE [Concomitant]
  8. MULTIVITAMIN [Concomitant]
  9. EYE DROPS [Concomitant]

REACTIONS (10)
  - Visual field defect [Not Recovered/Not Resolved]
  - Demyelination [Unknown]
  - Transient ischaemic attack [Unknown]
  - Intraocular pressure increased [Unknown]
  - Carotid artery disease [Unknown]
  - Carotid artery stenosis [Unknown]
  - White matter lesion [Unknown]
  - Cerebral infarction [Unknown]
  - Sensory loss [Unknown]
  - Neuropathy peripheral [Unknown]
